FAERS Safety Report 9332769 (Version 1)
Quarter: 2013Q2

REPORT INFORMATION
  Report Type: Spontaneous
  Country: AU (occurrence: None)
  Receive Date: 20130603
  Receipt Date: 20130603
  Transmission Date: 20140414
  Serious: Yes (Other)
  Sender: FDA-Public Use
  Company Number: AU-PMX02-13-0008

PATIENT
  Age: 4 Year
  Sex: Male
  Weight: 22 kg

DRUGS (1)
  1. ARIDOL [Suspect]
     Route: 055
     Dates: start: 20130510, end: 20130510

REACTIONS (2)
  - Asthma [None]
  - Condition aggravated [None]
